FAERS Safety Report 8531946-0 (Version None)
Quarter: 2012Q3

REPORT INFORMATION
  Report Type: 
  Country: None (occurrence: None)
  Receive Date: 20120723
  Receipt Date: 20120713
  Transmission Date: 20120928
  Serious: Yes (Other)
  Sender: FDA-Public Use
  Company Number: FR-ABBOTT-12P-056-0955564-00

PATIENT
  Age: 31 Year
  Sex: Male

DRUGS (3)
  1. NSAI DRUG [Concomitant]
     Indication: ANKYLOSING SPONDYLITIS
     Dosage: OCCASIONALLY
  2. HUMIRA [Suspect]
     Indication: ANKYLOSING SPONDYLITIS
     Dates: start: 20080828
  3. SULFASALAZINE [Concomitant]
     Indication: ANKYLOSING SPONDYLITIS
     Dosage: DAILY

REACTIONS (2)
  - CLAVICLE FRACTURE [None]
  - FRACTURE DELAYED UNION [None]
